FAERS Safety Report 25485564 (Version 1)
Quarter: 2025Q2

REPORT INFORMATION
  Report Type: Spontaneous
  Country: US (occurrence: US)
  Receive Date: 20250626
  Receipt Date: 20250626
  Transmission Date: 20250716
  Serious: No
  Sender: INSUD PHARMA
  Company Number: US-INSUD PHARMA-2506US05006

PATIENT

DRUGS (2)
  1. SLYND [Suspect]
     Active Substance: DROSPIRENONE
     Indication: Product used for unknown indication
     Route: 048
     Dates: start: 202502
  2. SLYND [Suspect]
     Active Substance: DROSPIRENONE
     Route: 048

REACTIONS (3)
  - Amenorrhoea [Not Recovered/Not Resolved]
  - Intermenstrual bleeding [Recovered/Resolved]
  - Withdrawal bleed [Recovered/Resolved]

NARRATIVE: CASE EVENT DATE: 20250101
